FAERS Safety Report 12237120 (Version 1)
Quarter: 2016Q2

REPORT INFORMATION
  Report Type: Report from Study
  Country: US (occurrence: US)
  Receive Date: 20160405
  Receipt Date: 20160405
  Transmission Date: 20160815
  Serious: No
  Sender: FDA-Public Use
  Company Number: US-AMGEN-USASL2016040514

PATIENT
  Age: 43 Year
  Sex: Female

DRUGS (1)
  1. ENBREL [Suspect]
     Active Substance: ETANERCEPT
     Indication: RHEUMATOID ARTHRITIS
     Dosage: 50 MG, QWK
     Route: 065
     Dates: start: 20151229

REACTIONS (5)
  - Injection site bruising [Recovered/Resolved]
  - Oropharyngeal pain [Recovered/Resolved]
  - Incorrect product storage [Unknown]
  - Injection site pain [Unknown]
  - Stomatitis [Recovered/Resolved]
